FAERS Safety Report 7818106-3 (Version None)
Quarter: 2011Q4

REPORT INFORMATION
  Report Type: 
  Country: None (occurrence: None)
  Receive Date: 20111017
  Receipt Date: 20111012
  Transmission Date: 20120403
  Serious: Yes (Hospitalization)
  Sender: FDA-Public Use
  Company Number: US-ABBOTT-11P-163-0863393-00

PATIENT
  Sex: Female
  Weight: 79.45 kg

DRUGS (10)
  1. ENTOCORT EC [Concomitant]
     Indication: CROHN'S DISEASE
  2. AZATHIOPRINE [Concomitant]
     Indication: CROHN'S DISEASE
  3. TOPROL-XL [Concomitant]
     Indication: HYPERTENSION
  4. HUMIRA [Suspect]
     Indication: CROHN'S DISEASE
     Dates: start: 20101101, end: 20110101
  5. HUMIRA [Suspect]
     Dates: start: 20110101
  6. CELEXA [Concomitant]
     Indication: DEPRESSION
  7. ZOFRAN [Concomitant]
     Indication: NAUSEA
  8. TRAZODONE HYDROCHLORIDE [Concomitant]
     Indication: INSOMNIA
  9. ADDERALL XR 10 [Concomitant]
     Indication: ATTENTION DEFICIT/HYPERACTIVITY DISORDER
  10. CHOLESTYRAMINE [Concomitant]
     Indication: BILE ACID MALABSORPTION

REACTIONS (9)
  - COLONIC STENOSIS [None]
  - HAEMATOCRIT DECREASED [None]
  - VENOUS HAEMORRHAGE [None]
  - HAEMORRHAGE [None]
  - ABDOMINAL PAIN [None]
  - GASTROINTESTINAL INFLAMMATION [None]
  - INTESTINAL OBSTRUCTION [None]
  - FREQUENT BOWEL MOVEMENTS [None]
  - DRUG INEFFECTIVE [None]
